FAERS Safety Report 7202549-5 (Version None)
Quarter: 2010Q4

REPORT INFORMATION
  Report Type: 
  Country: None (occurrence: None)
  Receive Date: 20101229
  Receipt Date: 20101227
  Transmission Date: 20110411
  Serious: Yes (Other)
  Sender: FDA-Public Use
  Company Number: GXKR2010DE14251

PATIENT
  Weight: 76 kg

DRUGS (1)
  1. MTX HEXAL [Suspect]
     Indication: RHEUMATOID ARTHRITIS
     Dosage: 15 MG, QW
     Route: 048
     Dates: start: 20100927, end: 20101108

REACTIONS (4)
  - DEPRESSION [None]
  - DYSPNOEA [None]
  - GINGIVAL BLEEDING [None]
  - HEADACHE [None]
